FAERS Safety Report 8716267 (Version 2)
Quarter: 2013Q4

REPORT INFORMATION
  Report Type: Report from Study
  Country: US (occurrence: US)
  Receive Date: 20120810
  Receipt Date: 20131108
  Transmission Date: 20140711
  Serious: Yes (Other)
  Sender: FDA-Public Use
  Company Number: US-009507513-1208USA001237

PATIENT
  Sex: Male

DRUGS (3)
  1. REBETOL [Suspect]
     Indication: HEPATITIS C
     Dosage: UNK
     Route: 048
     Dates: end: 201207
  2. PEGASYS [Concomitant]
     Indication: HEPATITIS C
     Dosage: UNK
     Dates: start: 20120720
  3. PEGASYS [Concomitant]
     Dosage: REDUCED TO HALF DOSE

REACTIONS (8)
  - Blood glucose increased [Unknown]
  - Influenza like illness [Unknown]
  - Chromaturia [Unknown]
  - White blood cell count decreased [Unknown]
  - Depressed mood [Unknown]
  - Nausea [Unknown]
  - Headache [Unknown]
  - Fatigue [Unknown]
